FAERS Safety Report 6380004-2 (Version None)
Quarter: 2009Q3

REPORT INFORMATION
  Report Type: 
  Country: None (occurrence: None)
  Receive Date: 20090928
  Receipt Date: 20090921
  Transmission Date: 20100115
  Serious: Yes (Hospitalization)
  Sender: FDA-Public Use
  Company Number: FR-BAXTER-2009BH014466

PATIENT
  Age: 62 Year
  Sex: Male

DRUGS (5)
  1. ENDOXAN BAXTER [Suspect]
     Indication: THERAPEUTIC PROCEDURE
     Route: 042
     Dates: start: 20090501, end: 20090501
  2. ENDOXAN BAXTER [Suspect]
     Route: 042
     Dates: start: 20080101, end: 20080101
  3. FLUDARA [Suspect]
     Indication: THERAPEUTIC PROCEDURE
     Route: 042
     Dates: start: 20090501, end: 20090505
  4. FLUDARA [Suspect]
     Route: 042
     Dates: start: 20080101, end: 20080101
  5. NEORAL [Suspect]
     Indication: DRUG USE FOR UNKNOWN INDICATION
     Route: 048
     Dates: start: 20090503, end: 20090507

REACTIONS (1)
  - EXTRAPYRAMIDAL DISORDER [None]
